FAERS Safety Report 18848761 (Version 1)
Quarter: 2021Q1

REPORT INFORMATION
  Report Type: Spontaneous
  Country: US (occurrence: US)
  Receive Date: 20210204
  Receipt Date: 20210204
  Transmission Date: 20210419
  Serious: No
  Sender: FDA-Public Use
  Company Number: US-GLAXOSMITHKLINE-USCH2021002769

PATIENT
  Sex: Male

DRUGS (4)
  1. ADVIL [Suspect]
     Active Substance: IBUPROFEN
     Indication: PAIN
  2. ADVIL [Suspect]
     Active Substance: IBUPROFEN
     Indication: HEADACHE
  3. ADVIL [Suspect]
     Active Substance: IBUPROFEN
     Indication: CHILLS
     Dosage: UNK
     Dates: start: 20210128
  4. ADVIL [Suspect]
     Active Substance: IBUPROFEN
     Indication: PYREXIA

REACTIONS (2)
  - Headache [Unknown]
  - Drug effect less than expected [Unknown]
